FAERS Safety Report 9537684 (Version 3)
Quarter: 2013Q4

REPORT INFORMATION
  Report Type: Spontaneous
  Country: JP (occurrence: JP)
  Receive Date: 20130919
  Receipt Date: 20131025
  Transmission Date: 20140711
  Serious: Yes (Other)
  Sender: FDA-Public Use
  Company Number: CHNY2013JP001859

PATIENT
  Age: 90 Year
  Sex: Female

DRUGS (3)
  1. PURSENNID [Suspect]
     Indication: CONSTIPATION
     Dosage: 24 MG, QD
     Route: 048
     Dates: start: 20130801
  2. COMTAN [Concomitant]
     Dosage: UNK,UNK
     Route: 048
     Dates: start: 20130905
  3. MADOPAR [Concomitant]
     Dosage: UNK,UNK
     Route: 048

REACTIONS (1)
  - Hyponatraemia [Not Recovered/Not Resolved]
